FAERS Safety Report 5515042-2 (Version None)
Quarter: 2007Q4

REPORT INFORMATION
  Report Type: 
  Country: None (occurrence: None)
  Receive Date: 20071113
  Receipt Date: 20061128
  Transmission Date: 20080405
  Serious: No
  Sender: FDA-Public Use
  Company Number: A0628992A

PATIENT
  Age: 86 Year
  Sex: Female

DRUGS (14)
  1. COREG [Suspect]
     Dosage: 6.25MG TWICE PER DAY
     Route: 048
     Dates: start: 20061122
  2. PLAVIX [Concomitant]
  3. CENTRUM SILVER [Concomitant]
  4. PROTONIX [Concomitant]
  5. PREMARIN [Concomitant]
  6. GLUCOSAMINE CHONDROITIN [Concomitant]
  7. TYLENOL (CAPLET) [Concomitant]
  8. ASPIRIN [Concomitant]
  9. VIT C [Concomitant]
  10. FOLDINE [Concomitant]
  11. TRICOR [Concomitant]
  12. ALPRAZOLAM [Concomitant]
  13. FUROSEMIDE [Concomitant]
  14. LIPRAM [Concomitant]

REACTIONS (5)
  - DIZZINESS [None]
  - EYE PAIN [None]
  - HYPERTENSION [None]
  - ILL-DEFINED DISORDER [None]
  - POLLAKIURIA [None]
